FAERS Safety Report 6000149-6 (Version None)
Quarter: 2008Q4

REPORT INFORMATION
  Report Type: 
  Country: None (occurrence: None)
  Receive Date: 20081215
  Receipt Date: 20081204
  Transmission Date: 20090506
  Serious: Yes (Other)
  Sender: FDA-Public Use
  Company Number: FR-JNJFOC-20081201865

PATIENT
  Age: 42 Year
  Sex: Female

DRUGS (3)
  1. REMICADE [Suspect]
     Dosage: 8TH INFUSION
     Route: 042
  2. REMICADE [Suspect]
     Indication: CROHN'S DISEASE
     Route: 042
  3. IMUREL [Concomitant]
     Indication: CROHN'S DISEASE

REACTIONS (1)
  - LUPUS-LIKE SYNDROME [None]
